FAERS Safety Report 13955967 (Version 3)
Quarter: 2017Q4

REPORT INFORMATION
  Report Type: Spontaneous
  Country: CL (occurrence: CL)
  Receive Date: 20170911
  Receipt Date: 20171004
  Transmission Date: 20180320
  Serious: Yes (Death, Other)
  Sender: FDA-Public Use
  Company Number: CL-PFIZER INC-2017387910

PATIENT
  Age: 54 Year
  Sex: Female

DRUGS (1)
  1. IBRANCE [Suspect]
     Active Substance: PALBOCICLIB
     Indication: BREAST CANCER METASTATIC
     Dosage: 125 MG, CYCLIC (ONE TABLET DAILY FOR 21 DAYS AND REST 7 DAYS AND START A NEW CYCLE)
     Dates: start: 201706, end: 201707

REACTIONS (9)
  - Joint injury [Recovered/Resolved]
  - Syncope [Recovering/Resolving]
  - Appetite disorder [Unknown]
  - Fall [Recovered/Resolved]
  - Depression [Unknown]
  - Death [Fatal]
  - Haematoma [Recovered/Resolved]
  - Multiple fractures [Recovered/Resolved]
  - Abdominal pain upper [Unknown]

NARRATIVE: CASE EVENT DATE: 2017
